FAERS Safety Report 13913090 (Version 2)
Quarter: 2017Q3

REPORT INFORMATION
  Report Type: Report from Study
  Country: None (occurrence: US)
  Receive Date: 20170828
  Receipt Date: 20170907
  Transmission Date: 20171127
  Serious: Yes (Death)
  Sender: FDA-Public Use
  Company Number: US-VIFOR (INTERNATIONAL) INC.-VIT-2017-08689

PATIENT
  Age: 100 Year
  Sex: Male
  Weight: 84.44 kg

DRUGS (6)
  1. MULTIVITE [Concomitant]
     Active Substance: VITAMINS
  2. VELTASSA [Suspect]
     Active Substance: PATIROMER
     Indication: HYPERKALAEMIA
     Route: 048
  3. CYANOCOBALAMIN. [Concomitant]
     Active Substance: CYANOCOBALAMIN
  4. VELTASSA [Suspect]
     Active Substance: PATIROMER
     Indication: BLOOD POTASSIUM INCREASED
  5. CINNAMOMUM VERUM BARK [Concomitant]
     Active Substance: CINNAMON
  6. TRANSDERM [Concomitant]

REACTIONS (3)
  - Inappropriate schedule of drug administration [Unknown]
  - Treatment noncompliance [Unknown]
  - Death [Fatal]

NARRATIVE: CASE EVENT DATE: 20160210
